FAERS Safety Report 12269186 (Version 2)
Quarter: 2016Q2

REPORT INFORMATION
  Report Type: Report from Study
  Country: US (occurrence: US)
  Receive Date: 20160414
  Receipt Date: 20160511
  Transmission Date: 20160815
  Serious: Yes (Hospitalization)
  Sender: FDA-Public Use
  Company Number: US-BIOGEN-2015BI098119

PATIENT
  Age: 54 Year
  Sex: Female

DRUGS (2)
  1. AVONEX [Suspect]
     Active Substance: INTERFERON BETA-1A
     Indication: MULTIPLE SCLEROSIS
     Route: 030
     Dates: start: 19990201, end: 20130426
  2. AVONEX [Suspect]
     Active Substance: INTERFERON BETA-1A
     Route: 030
     Dates: start: 20130427

REACTIONS (6)
  - Chondropathy [Recovered/Resolved with Sequelae]
  - Ligament rupture [Recovered/Resolved]
  - Multiple sclerosis relapse [Recovered/Resolved]
  - Knee arthroplasty [Recovered/Resolved]
  - Meniscus injury [Recovered/Resolved]
  - Migraine [Recovered/Resolved with Sequelae]

NARRATIVE: CASE EVENT DATE: 2008
